FAERS Safety Report 16993436 (Version 1)
Quarter: 2019Q4

REPORT INFORMATION
  Report Type: Spontaneous
  Country: US (occurrence: US)
  Receive Date: 20191105
  Receipt Date: 20191105
  Transmission Date: 20200122
  Serious: No
  Sender: FDA-Public Use
  Company Number: US-SCIEGEN PHARMACEUTICALS INC-2019SCISPO00326

PATIENT

DRUGS (1)
  1. PREGABALIN CAPSULES [Suspect]
     Active Substance: PREGABALIN

REACTIONS (2)
  - Drug ineffective [Unknown]
  - Product substitution issue [None]
